FAERS Safety Report 9374642 (Version 1)
Quarter: 2013Q2

REPORT INFORMATION
  Report Type: Spontaneous
  Country: FR (occurrence: FR)
  Receive Date: 20130628
  Receipt Date: 20130628
  Transmission Date: 20140414
  Serious: Yes (Other)
  Sender: FDA-Public Use
  Company Number: FR-PFIZER INC-2013189381

PATIENT
  Age: 53 Year
  Sex: Female
  Weight: 74 kg

DRUGS (14)
  1. TAZOCILLINE [Suspect]
     Indication: SKIN GRAFT
     Dosage: 4 G, DAILY
     Route: 042
     Dates: start: 20130527, end: 20130528
  2. THYMOGLOBULINE [Suspect]
     Indication: SKIN GRAFT
     Dosage: 30.7 MG, DAILY
     Route: 042
     Dates: start: 20130526, end: 20130526
  3. THYMOGLOBULINE [Suspect]
     Dosage: 122.9 MG, DAILY
     Route: 042
     Dates: start: 20130527, end: 20130527
  4. THYMOGLOBULINE [Suspect]
     Dosage: 153.6 MG, DAILY
     Route: 042
     Dates: start: 20130528, end: 20130528
  5. ENDOXAN [Suspect]
     Indication: SKIN GRAFT
     Dosage: 3687 MG, DAILY
     Route: 042
     Dates: start: 20130526, end: 20130528
  6. UROMITEXAN [Suspect]
     Indication: SKIN GRAFT
     Dosage: 922 MG, 4X/DAY
     Route: 042
     Dates: start: 20130527, end: 20130528
  7. LEVOTHYROX [Concomitant]
     Dosage: 100 UG, 1X/DAY IN THE MORNING
     Route: 048
  8. LODOZ [Concomitant]
     Dosage: 1 DF, 1X/DAY
     Route: 048
  9. DELURSAN [Concomitant]
     Dosage: 500 MG, 2X/DAY
     Route: 048
     Dates: start: 20130520
  10. ALLOPURINOL [Concomitant]
     Dosage: 200 MG, DAILY
     Route: 048
     Dates: start: 20130520
  11. FLUCONAZOLE [Concomitant]
     Dosage: 200 MG, DAILY
     Route: 048
     Dates: start: 20130520
  12. ZELITREX [Concomitant]
     Dosage: 500 MG, 2X/DAY
     Route: 048
     Dates: start: 20130520
  13. POLARAMINE [Concomitant]
     Indication: SKIN GRAFT
     Dosage: 10 MG, DAILY
     Route: 042
     Dates: start: 20130526, end: 20130528
  14. SOLU-MEDROL [Concomitant]
     Indication: SKIN GRAFT
     Dosage: 60 MG, DAILY
     Route: 042
     Dates: start: 20130526, end: 20130528

REACTIONS (2)
  - Hypersensitivity [Recovered/Resolved]
  - Face oedema [Recovered/Resolved]
